FAERS Safety Report 5969045-4 (Version None)
Quarter: 2008Q4

REPORT INFORMATION
  Report Type: 
  Country: None (occurrence: None)
  Receive Date: 20081126
  Receipt Date: 20081114
  Transmission Date: 20090506
  Serious: Yes (Death)
  Sender: FDA-Public Use
  Company Number: GB-WYE-H06976608

PATIENT
  Sex: Male

DRUGS (3)
  1. IBUPROFEN TABLETS [Suspect]
     Indication: DRUG USE FOR UNKNOWN INDICATION
     Route: 048
     Dates: start: 20081008, end: 20081104
  2. OXYCODONE HCL [Concomitant]
     Indication: DRUG USE FOR UNKNOWN INDICATION
     Route: 048
     Dates: start: 20081008, end: 20081104
  3. GEMCITABINE HCL [Suspect]
     Indication: PANCREATIC CARCINOMA
     Dosage: 1000 MG/M2 (7 IN 8 WEEKS)
     Route: 042
     Dates: start: 20081016, end: 20081031

REACTIONS (4)
  - ANAEMIA [None]
  - CARDIAC ARREST [None]
  - HYPERBILIRUBINAEMIA [None]
  - RENAL DISORDER [None]
